FAERS Safety Report 8377013-0 (Version None)
Quarter: 2012Q2

REPORT INFORMATION
  Report Type: 
  Country: None (occurrence: None)
  Receive Date: 20120522
  Receipt Date: 20120514
  Transmission Date: 20120825
  Serious: Yes (Disabling)
  Sender: FDA-Public Use
  Company Number: PT-TEVA-338758ISR

PATIENT
  Sex: Female
  Weight: 78 kg

DRUGS (4)
  1. PROPAFENONE HYDROCHLORIDE [Concomitant]
     Indication: ATRIAL FIBRILLATION
     Dosage: 450 MILLIGRAM;
     Route: 048
     Dates: start: 20090101
  2. LORAZEPAM [Concomitant]
     Indication: ANXIETY
     Dosage: 2.5 MILLIGRAM;
     Route: 048
     Dates: start: 20120405
  3. WARFARIN SODIUM [Concomitant]
     Indication: THROMBOSIS PROPHYLAXIS
     Dosage: 2.5 MILLIGRAM;
     Route: 048
     Dates: start: 20090101
  4. ATENOLOL [Suspect]
     Indication: ARRHYTHMIA
     Dosage: 50 MILLIGRAM;
     Route: 048
     Dates: start: 20120405

REACTIONS (2)
  - MUSCULAR WEAKNESS [None]
  - FATIGUE [None]
